FAERS Safety Report 9078728 (Version 1)
Quarter: 2013Q1

REPORT INFORMATION
  Report Type: Spontaneous
  Country: GB (occurrence: GB)
  Receive Date: 20130130
  Receipt Date: 20130130
  Transmission Date: 20140127
  Serious: Yes (Hospitalization)
  Sender: FDA-Public Use
  Company Number: GB-UCBSA-076764

PATIENT
  Age: 55 Year
  Sex: Male

DRUGS (5)
  1. KEPPRA [Suspect]
     Indication: EPILEPSY
     Dosage: DOSE: 1000 MG
     Route: 048
  2. CLOMIPRAMINE [Suspect]
     Indication: SCHIZOAFFECTIVE DISORDER
     Dosage: DOSE: 50 MG
     Route: 048
  3. CLOZARIL [Suspect]
     Indication: SCHIZOPHRENIA
     Dosage: DOSE: 600 MG
     Route: 048
     Dates: start: 20030918
  4. HYOSCINE HYDROBROMIDE [Suspect]
     Indication: DROOLING
     Dosage: DOSE: 300 MCG
     Route: 048
  5. LAMOTRIGINE [Suspect]
     Indication: EPILEPSY
     Dosage: DOSE: 100 MG
     Route: 048

REACTIONS (4)
  - Differential white blood cell count abnormal [Unknown]
  - Neutrophil count increased [Recovered/Resolved]
  - Urinary tract infection [Recovered/Resolved]
  - White blood cell count increased [Recovered/Resolved]
